FAERS Safety Report 5742961-4 (Version None)
Quarter: 2008Q2

REPORT INFORMATION
  Report Type: 
  Country: None (occurrence: None)
  Receive Date: 20080515
  Receipt Date: 20080515
  Transmission Date: 20081010
  Serious: No
  Sender: FDA-Public Use
  Company Number: None

PATIENT
  Sex: Female
  Weight: 76.2043 kg

DRUGS (1)
  1. PRAVASTATIN SODIUM [Suspect]
     Indication: BLOOD CHOLESTEROL INCREASED
     Dosage: 1 TABLET EACH DAY
     Dates: start: 20080331, end: 20080508

REACTIONS (4)
  - EYE DISORDER [None]
  - HEADACHE [None]
  - MYALGIA [None]
  - NO THERAPEUTIC RESPONSE [None]
